FAERS Safety Report 7081488-7 (Version None)
Quarter: 2010Q4

REPORT INFORMATION
  Report Type: 
  Country: None (occurrence: None)
  Receive Date: 20101102
  Receipt Date: 20101102
  Transmission Date: 20110411
  Serious: No
  Sender: FDA-Public Use
  Company Number: None

PATIENT
  Age: 37 Year
  Sex: Female

DRUGS (1)
  1. HYDROCHLOROTHIAZIDE [Suspect]
     Indication: HYPERTENSION
     Dosage: 1 TAB EVERY DAY PO
     Route: 048
     Dates: start: 20100804, end: 20100818

REACTIONS (12)
  - ASTHENIA [None]
  - DIZZINESS [None]
  - DYSPEPSIA [None]
  - FALL [None]
  - HEADACHE [None]
  - HYPERHIDROSIS [None]
  - HYPOAESTHESIA [None]
  - HYPOKALAEMIA [None]
  - MUSCLE SPASMS [None]
  - PAIN [None]
  - TINNITUS [None]
  - VISION BLURRED [None]
